FAERS Safety Report 5941640-8 (Version None)
Quarter: 2008Q4

REPORT INFORMATION
  Report Type: 
  Country: None (occurrence: None)
  Receive Date: 20081104
  Receipt Date: 20081104
  Transmission Date: 20090506
  Serious: No
  Sender: FDA-Public Use
  Company Number: None

PATIENT
  Age: 44 Year
  Sex: Female
  Weight: 90.7194 kg

DRUGS (2)
  1. CAPTOPRIL [Suspect]
     Indication: BLOOD PRESSURE INCREASED
     Dosage: 25MG  TWICE DAILY PO
     Route: 048
     Dates: start: 20080912, end: 20081010
  2. CAPTOPRIL [Suspect]
     Indication: TYPE 2 DIABETES MELLITUS
     Dosage: 25MG  TWICE DAILY PO
     Route: 048
     Dates: start: 20080912, end: 20081010

REACTIONS (9)
  - CHEST PAIN [None]
  - DRUG HYPERSENSITIVITY [None]
  - DYSPNOEA [None]
  - PAIN OF SKIN [None]
  - PRURITUS [None]
  - RASH ERYTHEMATOUS [None]
  - RASH GENERALISED [None]
  - URTICARIA [None]
  - WHEEZING [None]
